FAERS Safety Report 6950744-2 (Version None)
Quarter: 2010Q3

REPORT INFORMATION
  Report Type: 
  Country: None (occurrence: None)
  Receive Date: 20100828
  Receipt Date: 20100222
  Transmission Date: 20110219
  Serious: No
  Sender: FDA-Public Use
  Company Number: US-ABBOTT-10P-163-0628773-00

PATIENT
  Sex: Female
  Weight: 98.972 kg

DRUGS (2)
  1. NIASPAN [Suspect]
     Indication: BLOOD CHOLESTEROL INCREASED
     Dates: start: 20091201
  2. AVALIDE [Concomitant]
     Indication: HYPERTENSION
     Dosage: 12.5MG; 300MG

REACTIONS (3)
  - FLUSHING [None]
  - PRURITUS [None]
  - RASH PAPULAR [None]
